FAERS Safety Report 21310776 (Version 1)
Quarter: 2022Q3

REPORT INFORMATION
  Report Type: Spontaneous
  Country: CA (occurrence: None)
  Receive Date: 20220909
  Receipt Date: 20220909
  Transmission Date: 20221026
  Serious: Yes (Hospitalization)
  Sender: FDA-Public Use
  Company Number: CA-ROCHE-3174932

PATIENT
  Sex: Male
  Weight: 79 kg

DRUGS (10)
  1. ERIVEDGE [Suspect]
     Active Substance: VISMODEGIB
     Indication: Basal cell carcinoma
     Route: 048
  2. ALENDRONATE [Concomitant]
     Active Substance: ALENDRONATE SODIUM
     Route: 065
  3. ATORVASTATIN [Concomitant]
     Active Substance: ATORVASTATIN
     Route: 065
  4. DULOXETINE HYDROCHLORIDE [Concomitant]
     Active Substance: DULOXETINE HYDROCHLORIDE
     Route: 048
  5. DUTASTERIDE [Concomitant]
     Active Substance: DUTASTERIDE
  6. LOTEPREDNOL ETABONATE [Concomitant]
     Active Substance: LOTEPREDNOL ETABONATE
     Dosage: SUSPENSION OPHTHALMIC
  7. PREGABALIN [Concomitant]
     Active Substance: PREGABALIN
  8. TAMSULOSIN [Concomitant]
     Active Substance: TAMSULOSIN
  9. TRAMADOL HYDROCHLORIDE [Concomitant]
     Active Substance: TRAMADOL HYDROCHLORIDE
  10. VITAMIN B12 [Concomitant]
     Active Substance: CYANOCOBALAMIN

REACTIONS (15)
  - Cellulitis [Unknown]
  - Chest wall abscess [Unknown]
  - Endocarditis staphylococcal [Unknown]
  - Intervertebral discitis [Unknown]
  - Mediastinal abscess [Unknown]
  - Mediastinitis [Unknown]
  - Muscle swelling [Unknown]
  - Odynophagia [Unknown]
  - Osteitis [Unknown]
  - Paraspinal abscess [Unknown]
  - Parotid abscess [Unknown]
  - Pharyngeal abscess [Unknown]
  - Pyomyositis [Unknown]
  - Staphylococcal bacteraemia [Unknown]
  - Staphylococcal infection [Unknown]
